FAERS Safety Report 4721862-4 (Version None)
Quarter: 2005Q3

REPORT INFORMATION
  Report Type: 
  Country: None (occurrence: None)
  Receive Date: 20050721
  Receipt Date: 20050516
  Transmission Date: 20060218
  Serious: No
  Sender: FDA-Public Use
  Company Number: US-BRISTOL-MYERS SQUIBB COMPANY-12969564

PATIENT
  Age: 70 Year
  Sex: Female
  Weight: 95 kg

DRUGS (4)
  1. COUMADIN [Suspect]
     Indication: HEART RATE IRREGULAR
     Dosage: DOSE CHANGED FROM 5MG X 2 DAYS + 7.5 MG THE NEXT DAY; THEN 7.5 MG X 2 DAYS AND 5MG THE NEXT DAY.
     Route: 048
     Dates: start: 20050401
  2. BETAPACE [Concomitant]
  3. CO-Q-10 [Concomitant]
  4. ZETIA [Concomitant]

REACTIONS (3)
  - BACK PAIN [None]
  - NECK PAIN [None]
  - PROTHROMBIN TIME ABNORMAL [None]
